FAERS Safety Report 9165522 (Version 2)
Quarter: 2013Q1

REPORT INFORMATION
  Report Type: Spontaneous
  Country: US (occurrence: None)
  Receive Date: 20130228
  Receipt Date: 20130305
  Transmission Date: 20140127
  Serious: Yes (Hospitalization, Other)
  Sender: FDA-Public Use
  Company Number: JPI-P-027210

PATIENT
  Age: 61 Year
  Sex: Female
  Weight: 72.58 kg

DRUGS (15)
  1. XYREM (500 MILLIGRAM/MILLILITERS, SOLUTION) (SODIUM OXYBATE) [Suspect]
     Indication: SLEEP DISORDER
     Route: 048
     Dates: start: 20051216
  2. XYREM (500 MILLIGRAM/MILLILITERS, SOLUTION) (SODIUM OXYBATE) [Suspect]
     Indication: SLEEP DISORDER
     Route: 048
     Dates: start: 20051216
  3. ZOLOFT (SERTRALINE) [Concomitant]
  4. CELEBREX (CELECOXIB0 [Concomitant]
  5. PRILOSEC [Concomitant]
  6. REQUIP (ROPINIROLE) [Concomitant]
  7. LIPITOR (ATORVASTATIN) [Concomitant]
  8. LOMOTIL (ATROPIN) [Concomitant]
  9. HYOSCYAMINE [Concomitant]
  10. PERCOCET (OXYCODONE) [Concomitant]
  11. VITAMIN B12 [Concomitant]
  12. FISH OIL [Concomitant]
  13. TYLENOL [Concomitant]
  14. PREDNISONE [Concomitant]
  15. ALPRAZOLAM [Concomitant]

REACTIONS (5)
  - Sinusitis [None]
  - Nasopharyngitis [None]
  - Histoplasmosis [None]
  - Pulmonary oedema [None]
  - Fall [None]
